FAERS Safety Report 4381394-2 (Version None)
Quarter: 2004Q2

REPORT INFORMATION
  Report Type: 
  Country: None (occurrence: None)
  Receive Date: 20040616
  Receipt Date: 20040602
  Transmission Date: 20050107
  Serious: Yes (Hospitalization)
  Sender: FDA-Public Use
  Company Number: USA040464014

PATIENT
  Age: 62 Year
  Sex: Female
  Weight: 127 kg

DRUGS (5)
  1. GEMZAR [Suspect]
     Indication: BREAST CANCER METASTATIC
     Dosage: 2000 MG
     Dates: start: 20040107
  2. PEPCID [Concomitant]
  3. MULTIVITAMIN [Concomitant]
  4. LEVOXYL [Concomitant]
  5. REGLAN [Concomitant]

REACTIONS (5)
  - ALOPECIA [None]
  - DRUG HYPERSENSITIVITY [None]
  - LABORATORY TEST ABNORMAL [None]
  - RASH [None]
  - TACHYCARDIA [None]
